FAERS Safety Report 13040867 (Version 2)
Quarter: 2017Q1

REPORT INFORMATION
  Report Type: Spontaneous
  Country: US (occurrence: US)
  Receive Date: 20161219
  Receipt Date: 20170206
  Transmission Date: 20170428
  Serious: No
  Sender: FDA-Public Use
  Company Number: US-PFIZER INC-2016575346

PATIENT
  Age: 61 Year
  Sex: Female

DRUGS (2)
  1. XELJANZ XR [Suspect]
     Active Substance: TOFACITINIB CITRATE
     Indication: RHEUMATOID ARTHRITIS
     Dosage: 11 MG, 1X/DAY
     Dates: start: 20161205
  2. HYDROCODONE [Concomitant]
     Active Substance: HYDROCODONE
     Dosage: 5 DF, DAILY

REACTIONS (9)
  - Feeling abnormal [Unknown]
  - Musculoskeletal discomfort [Unknown]
  - Joint swelling [Unknown]
  - Bone development abnormal [Unknown]
  - Arthropathy [Unknown]
  - Therapeutic response unexpected [Unknown]
  - Energy increased [Unknown]
  - Drug ineffective [Unknown]
  - Sensitivity to weather change [Unknown]
